FAERS Safety Report 10668527 (Version 2)
Quarter: 2015Q1

REPORT INFORMATION
  Report Type: Spontaneous
  Country: JP (occurrence: JP)
  Receive Date: 20141222
  Receipt Date: 20150128
  Transmission Date: 20150720
  Serious: Yes (Other)
  Sender: FDA-Public Use
  Company Number: JP-MYLANLABS-2014M1013879

PATIENT

DRUGS (4)
  1. DOCETAXEL. [Suspect]
     Active Substance: DOCETAXEL
     Indication: PROSTATE CANCER
     Dosage: 52 MG/M2, UNK
     Route: 042
  2. DOCETAXEL. [Suspect]
     Active Substance: DOCETAXEL
     Indication: METASTASES TO LYMPH NODES
  3. CARBOPLATIN INJECTION 50 MG ^NK^ [Suspect]
     Active Substance: CARBOPLATIN
     Indication: PROSTATE CANCER
     Dosage: UNK
     Route: 041
  4. CARBOPLATIN INJECTION 50 MG ^NK^ [Suspect]
     Active Substance: CARBOPLATIN
     Indication: METASTASES TO LYMPH NODES

REACTIONS (2)
  - Bone marrow failure [Recovered/Resolved]
  - Performance status decreased [Unknown]
